FAERS Safety Report 12168025 (Version 4)
Quarter: 2016Q2

REPORT INFORMATION
  Report Type: Spontaneous
  Country: CN (occurrence: CN)
  Receive Date: 20160310
  Receipt Date: 20160527
  Transmission Date: 20160815
  Serious: Yes (Hospitalization, Other)
  Sender: FDA-Public Use
  Company Number: CN-ASTRAZENECA-2016SE23545

PATIENT
  Age: 69 Year
  Sex: Male

DRUGS (8)
  1. MUCOSOLVAN [Concomitant]
     Active Substance: AMBROXOL HYDROCHLORIDE
     Dates: start: 201512, end: 20160305
  2. SYMBICORT [Suspect]
     Active Substance: BUDESONIDE\FORMOTEROL FUMARATE DIHYDRATE
     Indication: CHRONIC OBSTRUCTIVE PULMONARY DISEASE
     Dosage: 160 UG, 2 INHALATIONS, TWO TIMES DAILY- EVERY 12 HOURS
     Route: 055
     Dates: start: 201410
  3. SYMBICORT [Suspect]
     Active Substance: BUDESONIDE\FORMOTEROL FUMARATE DIHYDRATE
     Indication: CHRONIC OBSTRUCTIVE PULMONARY DISEASE
     Dosage: 160 UG, 2 INHALATIONS, THREE TIMES DAILY- EVERY EIGHT HOURS
     Route: 055
  4. CHINESE MEDICATION [Concomitant]
     Active Substance: UNSPECIFIED INGREDIENT
     Dates: start: 2014
  5. SYMBICORT [Suspect]
     Active Substance: BUDESONIDE\FORMOTEROL FUMARATE DIHYDRATE
     Indication: CHRONIC OBSTRUCTIVE PULMONARY DISEASE
     Dosage: 2 INHALATIONS EACH TIMES TWICE A DAY- EVERY 12 HOURS
     Route: 055
     Dates: start: 201602
  6. HERBAL MEDICINE [Concomitant]
     Indication: PRODUCT USED FOR UNKNOWN INDICATION
  7. SYMBICORT [Suspect]
     Active Substance: BUDESONIDE\FORMOTEROL FUMARATE DIHYDRATE
     Indication: CHRONIC OBSTRUCTIVE PULMONARY DISEASE
     Dosage: ONE INHALATION EACH TIME TWICE A DAY- EVERY 12 HOURS
     Route: 055
     Dates: start: 2015
  8. HEART-PROTECTING MUSK PILL [Concomitant]
     Dosage: 2 PILLS TWICE DAILY

REACTIONS (17)
  - Nasopharyngitis [Unknown]
  - Blood pressure increased [Unknown]
  - Toothache [Unknown]
  - Dyspnoea [Unknown]
  - Saliva altered [Recovered/Resolved]
  - Cross infection [Unknown]
  - Thyroid mass [Unknown]
  - Headache [Unknown]
  - Fatigue [Unknown]
  - Extrasystoles [Unknown]
  - Condition aggravated [Unknown]
  - Pulmonary function test decreased [Unknown]
  - Pyrexia [Recovered/Resolved]
  - Lung infection [Unknown]
  - Hypoxia [Recovered/Resolved]
  - Blood pressure abnormal [Unknown]
  - Dry mouth [Unknown]

NARRATIVE: CASE EVENT DATE: 2014
